FAERS Safety Report 4602042-X (Version None)
Quarter: 2005Q1

REPORT INFORMATION
  Report Type: 
  Country: None (occurrence: None)
  Receive Date: 20050308
  Receipt Date: 20000907
  Transmission Date: 20050727
  Serious: Yes (Hospitalization)
  Sender: FDA-Public Use
  Company Number: US-MERCK-00090519

PATIENT
  Age: 76 Year
  Sex: Female

DRUGS (11)
  1. VIOXX [Suspect]
     Indication: BACK PAIN
     Route: 048
     Dates: start: 20000101, end: 20000901
  2. VIOXX [Suspect]
     Route: 048
     Dates: start: 20000901, end: 20000905
  3. VIOXX [Suspect]
     Route: 048
     Dates: end: 20040930
  4. VIOXX [Suspect]
     Indication: ARTHRITIS
     Route: 048
     Dates: start: 20000101, end: 20000901
  5. VIOXX [Suspect]
     Route: 048
     Dates: start: 20000901, end: 20000905
  6. VIOXX [Suspect]
     Route: 048
     Dates: end: 20040930
  7. ACCUPRIL [Concomitant]
     Route: 065
  8. METOPROLOL [Concomitant]
     Route: 065
  9. [THERAPY UNSPECIFIED] [Concomitant]
     Route: 065
  10. INSULIN [Concomitant]
     Route: 065
  11. [THERAPY UNSPECIFIED] [Concomitant]
     Route: 065

REACTIONS (3)
  - DRUG INEFFECTIVE [None]
  - MYOCARDIAL INFARCTION [None]
  - OEDEMA PERIPHERAL [None]
